FAERS Safety Report 8017788-3 (Version None)
Quarter: 2012Q1

REPORT INFORMATION
  Report Type: 
  Country: None (occurrence: None)
  Receive Date: 20120103
  Receipt Date: 20111222
  Transmission Date: 20120608
  Serious: Yes (Life-Threatening)
  Sender: FDA-Public Use
  Company Number: AU-JNJFOC-20111209652

PATIENT
  Sex: Male

DRUGS (2)
  1. REMICADE [Suspect]
     Indication: ANKYLOSING SPONDYLITIS
     Dosage: 5 MG/KG 7TH DOSE
     Route: 042
     Dates: start: 20111222
  2. REMICADE [Suspect]
     Route: 042

REACTIONS (3)
  - INFUSION RELATED REACTION [None]
  - DYSPNOEA [None]
  - ANAPHYLACTIC REACTION [None]
